FAERS Safety Report 6531718-2 (Version None)
Quarter: 2010Q1

REPORT INFORMATION
  Report Type: 
  Country: None (occurrence: None)
  Receive Date: 20100107
  Receipt Date: 20100107
  Transmission Date: 20100710
  Serious: No
  Sender: FDA-Public Use
  Company Number: None

PATIENT
  Age: 62 Year
  Sex: Male
  Weight: 95 kg

DRUGS (1)
  1. AMLODIPINE [Suspect]
     Dosage: 10MG EVERY DAY PO
     Route: 048
     Dates: start: 20070827, end: 20091213

REACTIONS (10)
  - CAROTID BRUIT [None]
  - CHEST DISCOMFORT [None]
  - DIZZINESS [None]
  - HEADACHE [None]
  - HYPERTENSION [None]
  - HYPOAESTHESIA FACIAL [None]
  - OROPHARYNGEAL PAIN [None]
  - STRESS [None]
  - TOOTH DISORDER [None]
  - TRIGEMINAL NERVE DISORDER [None]
